FAERS Safety Report 5854667-1 (Version None)
Quarter: 2008Q3

REPORT INFORMATION
  Report Type: 
  Country: None (occurrence: None)
  Receive Date: 20080822
  Receipt Date: 20080814
  Transmission Date: 20090109
  Serious: Yes (Other)
  Sender: FDA-Public Use
  Company Number: US-PFIZER INC-2008068019

PATIENT

DRUGS (2)
  1. ZIPRASIDONE (CAPS) [Suspect]
  2. XANAX [Suspect]

REACTIONS (5)
  - ABASIA [None]
  - DISTURBANCE IN ATTENTION [None]
  - DYSGRAPHIA [None]
  - FEELING ABNORMAL [None]
  - PHYSICAL ASSAULT [None]
